FAERS Safety Report 14589739 (Version 2)
Quarter: 2018Q1

REPORT INFORMATION
  Report Type: Spontaneous
  Country: US (occurrence: US)
  Receive Date: 20180302
  Receipt Date: 20180323
  Transmission Date: 20180509
  Serious: Yes (Hospitalization, Other)
  Sender: FDA-Public Use
  Company Number: US-ASTRAZENECA-2018SE23202

PATIENT
  Age: 112 Month
  Sex: Female
  Weight: 27.2 kg

DRUGS (6)
  1. ABILIFY [Suspect]
     Active Substance: ARIPIPRAZOLE
     Route: 048
  2. LEVOTHYROXINE. [Concomitant]
     Active Substance: LEVOTHYROXINE
  3. LAMICTAL [Concomitant]
     Active Substance: LAMOTRIGINE
  4. SEROQUEL [Suspect]
     Active Substance: QUETIAPINE FUMARATE
     Indication: AUTISM SPECTRUM DISORDER
     Route: 048
  5. GENOTROPIN [Suspect]
     Active Substance: SOMATROPIN
     Indication: SEPTO-OPTIC DYSPLASIA
     Route: 065
     Dates: start: 20180119
  6. GENOTROPIN [Suspect]
     Active Substance: SOMATROPIN
     Indication: SEPTO-OPTIC DYSPLASIA
     Route: 065

REACTIONS (8)
  - Constipation [Unknown]
  - Vomiting [Unknown]
  - Secondary adrenocortical insufficiency [Unknown]
  - Dehydration [Unknown]
  - Gastrointestinal infection [Unknown]
  - Decreased appetite [Not Recovered/Not Resolved]
  - Hypothyroidism [Unknown]
  - Seizure [Unknown]

NARRATIVE: CASE EVENT DATE: 201712
